FAERS Safety Report 21424127 (Version 2)
Quarter: 2022Q4

REPORT INFORMATION
  Report Type: Spontaneous
  Country: CA (occurrence: CA)
  Receive Date: 20221007
  Receipt Date: 20221104
  Transmission Date: 20230112
  Serious: Yes (Other)
  Sender: FDA-Public Use
  Company Number: CA-SA-2022SA407841

PATIENT
  Age: 34 Year

DRUGS (6)
  1. DUPIXENT [Suspect]
     Active Substance: DUPILUMAB
     Indication: Dermatitis atopic
     Dosage: UNK UNK, QW
  2. HYDROCORTISONE [Concomitant]
     Active Substance: HYDROCORTISONE
     Dosage: UNK
  3. BETAMETHASONE [Concomitant]
     Active Substance: BETAMETHASONE
     Dosage: UNK
  4. IVERMECTIN [Concomitant]
     Active Substance: IVERMECTIN
     Dosage: UNK
  5. BILASTINE [Concomitant]
     Active Substance: BILASTINE
     Dosage: UNK
  6. OLOPATADINE [Concomitant]
     Active Substance: OLOPATADINE
     Dosage: UNK

REACTIONS (2)
  - Ocular surface disease [Recovered/Resolved]
  - Eye disorder [Unknown]

NARRATIVE: CASE EVENT DATE: 20181001
